FAERS Safety Report 10090434 (Version 1)
Quarter: 2014Q2

REPORT INFORMATION
  Report Type: Report from Study
  Country: US (occurrence: US)
  Receive Date: 20140421
  Receipt Date: 20140421
  Transmission Date: 20141212
  Serious: Yes (Hospitalization)
  Sender: FDA-Public Use
  Company Number: US-CELGENEUS-163-21880-14042042

PATIENT
  Age: 4 Year
  Sex: Male
  Weight: 20.75 kg

DRUGS (6)
  1. REVLIMID [Suspect]
     Indication: ASTROCYTOMA
     Dosage: 115 MILLIGRAM/SQ. METER
     Route: 048
     Dates: start: 20131120
  2. REVLIMID [Suspect]
     Dosage: 115 MILLIGRAM/SQ. METER
     Route: 048
     Dates: start: 20140312, end: 20140401
  3. LEVITERACETAM [Concomitant]
     Indication: PRODUCT USED FOR UNKNOWN INDICATION
     Dosage: 600 MILLIGRAM
     Route: 065
  4. LEVITERACETAM [Concomitant]
     Dosage: 800 MILLIGRAM
     Route: 065
  5. AMITRIPTYLINE [Concomitant]
     Indication: PRODUCT USED FOR UNKNOWN INDICATION
     Dosage: 10 MILLIGRAM
     Route: 065
  6. AMITRIPTYLINE [Concomitant]
     Dosage: 15 MILLIGRAM
     Route: 065

REACTIONS (1)
  - Convulsion [Recovered/Resolved]
